FAERS Safety Report 17803591 (Version 3)
Quarter: 2020Q2

REPORT INFORMATION
  Report Type: Report from Study
  Country: CN (occurrence: CN)
  Receive Date: 20200519
  Receipt Date: 20200630
  Transmission Date: 20200714
  Serious: Yes (Death)
  Sender: FDA-Public Use
  Company Number: CN-CHIESI USA, INC.-CN-2020CHI000270

PATIENT

DRUGS (4)
  1. VITAMIN K1 [Concomitant]
     Active Substance: PHYTONADIONE
     Indication: COAGULOPATHY
     Dosage: 1 MG, QD
     Dates: start: 20190325, end: 20190327
  2. CUROSURF [Suspect]
     Active Substance: PORACTANT ALFA
     Indication: NEONATAL RESPIRATORY DISTRESS SYNDROME
     Dosage: 120 MG, SINGLE
     Route: 007
     Dates: start: 20190325, end: 20190325
  3. CUROSURF [Suspect]
     Active Substance: PORACTANT ALFA
     Dosage: 67 MG
     Route: 007
     Dates: start: 20190327, end: 20190327
  4. CUROSURF [Suspect]
     Active Substance: PORACTANT ALFA
     Dosage: 67 MG
     Route: 007
     Dates: start: 20190327, end: 20190327

REACTIONS (13)
  - Pulmonary haemorrhage neonatal [Fatal]
  - Metabolic disorder [Fatal]
  - Cardiopulmonary failure [Fatal]
  - Electrolyte imbalance [Fatal]
  - Hypoproteinaemia [Fatal]
  - Sepsis [Fatal]
  - Jaundice neonatal [Fatal]
  - Anaemia neonatal [Fatal]
  - Inappropriate schedule of product administration [Fatal]
  - Coagulopathy [Fatal]
  - Cardiac failure [Fatal]
  - Brain injury [Fatal]
  - Metabolic acidosis [Fatal]

NARRATIVE: CASE EVENT DATE: 20190327
